FAERS Safety Report 9448226 (Version 2)
Quarter: 2013Q3

REPORT INFORMATION
  Report Type: Spontaneous
  Country: US (occurrence: US)
  Receive Date: 20130808
  Receipt Date: 20130826
  Transmission Date: 20140515
  Serious: No
  Sender: FDA-Public Use
  Company Number: US-009507513-1308USA003231

PATIENT
  Age: 71 Year
  Sex: Female
  Weight: 77.98 kg

DRUGS (4)
  1. MIRALAX [Suspect]
     Indication: COLONOSCOPY
     Dosage: 14 DF, QD
     Route: 048
     Dates: start: 20130729, end: 20130730
  2. MIRALAX [Suspect]
     Indication: MEDICAL OBSERVATION
  3. PREMARIN [Concomitant]
     Indication: HYSTERECTOMY
     Dosage: UNK, UNKNOWN
  4. PRISTIQ [Concomitant]
     Indication: DYSTHYMIC DISORDER
     Dosage: UNK, UNKNOWN

REACTIONS (2)
  - Prescribed overdose [Unknown]
  - Off label use [Unknown]
